FAERS Safety Report 11316854 (Version 1)
Quarter: 2015Q3

REPORT INFORMATION
  Report Type: Spontaneous
  Country: US (occurrence: None)
  Receive Date: 20150727
  Receipt Date: 20150727
  Transmission Date: 20151125
  Serious: Yes (Other)
  Sender: FDA-Public Use
  Company Number: None

PATIENT
  Age: 57 Year
  Sex: Female

DRUGS (1)
  1. STELARA [Suspect]
     Active Substance: USTEKINUMAB
     Dates: start: 20150622, end: 20150723

REACTIONS (6)
  - Fatigue [None]
  - Rash [None]
  - Productive cough [None]
  - Psoriasis [None]
  - Sputum discoloured [None]
  - Contusion [None]

NARRATIVE: CASE EVENT DATE: 20150622
